FAERS Safety Report 7529137-5 (Version None)
Quarter: 2011Q2

REPORT INFORMATION
  Report Type: 
  Country: None (occurrence: None)
  Receive Date: 20110607
  Receipt Date: 20050207
  Transmission Date: 20111010
  Serious: Yes (Hospitalization)
  Sender: FDA-Public Use
  Company Number: PHHO2004CA10625

PATIENT
  Sex: Female

DRUGS (1)
  1. CLOZARIL [Suspect]
     Dosage: 175 MG
     Route: 048
     Dates: start: 20030423

REACTIONS (4)
  - HALLUCINATION, AUDITORY [None]
  - SUICIDE ATTEMPT [None]
  - DRUG INEFFECTIVE [None]
  - INTENTIONAL OVERDOSE [None]
